FAERS Safety Report 7874971-5 (Version None)
Quarter: 2011Q4

REPORT INFORMATION
  Report Type: 
  Country: None (occurrence: None)
  Receive Date: 20111031
  Receipt Date: 20111024
  Transmission Date: 20120403
  Serious: Yes (Other)
  Sender: FDA-Public Use
  Company Number: IT-JNJFOC-20111006887

PATIENT
  Weight: 3.22 kg

DRUGS (2)
  1. ERYTHROMYCIN [Suspect]
     Route: 064
  2. ERYTHROMYCIN [Suspect]
     Indication: MATERNAL EXPOSURE DURING PREGNANCY
     Route: 064

REACTIONS (3)
  - MATERNAL DRUGS AFFECTING FOETUS [None]
  - SEPSIS NEONATAL [None]
  - SEPSIS [None]
